FAERS Safety Report 7030787-3 (Version None)
Quarter: 2010Q4

REPORT INFORMATION
  Report Type: 
  Country: None (occurrence: None)
  Receive Date: 20101001
  Receipt Date: 20100923
  Transmission Date: 20110411
  Serious: Yes (Other)
  Sender: FDA-Public Use
  Company Number: 2010MA003001

PATIENT
  Age: 51 Year
  Sex: Female

DRUGS (4)
  1. PROPRANOLOL HCL [Suspect]
     Dosage: 10 MG;
  2. CARBIMAZOLE (CARBIMAZOLE) [Suspect]
     Dosage: 15 MG;QD
     Dates: start: 20100720
  3. CON MEDS [Concomitant]
  4. PREV MEDS [Concomitant]

REACTIONS (1)
  - ALLERGY TO ARTHROPOD STING [None]
